FAERS Safety Report 25275039 (Version 1)
Quarter: 2025Q2

REPORT INFORMATION
  Report Type: Spontaneous
  Country: US (occurrence: US)
  Receive Date: 20250506
  Receipt Date: 20250506
  Transmission Date: 20250716
  Serious: No
  Sender: CB FLEET
  Company Number: US-PRESTIGE-202505-US-001216

PATIENT
  Sex: Male

DRUGS (1)
  1. DEVICE [Suspect]
     Active Substance: DEVICE
     Indication: Skin papilloma
     Route: 061

REACTIONS (1)
  - Device expulsion [None]
